FAERS Safety Report 14280984 (Version 2)
Quarter: 2018Q1

REPORT INFORMATION
  Report Type: Spontaneous
  Country: US (occurrence: US)
  Receive Date: 20171213
  Receipt Date: 20180116
  Transmission Date: 20180508
  Serious: No
  Sender: FDA-Public Use
  Company Number: US-GLAXOSMITHKLINE-US2017191196

PATIENT
  Age: 63 Year
  Sex: Male

DRUGS (1)
  1. ANORO ELLIPTA [Suspect]
     Active Substance: UMECLIDINIUM BROMIDE\VILANTEROL TRIFENATATE
     Indication: DYSPNOEA
     Route: 055

REACTIONS (5)
  - Drug ineffective for unapproved indication [Recovered/Resolved]
  - Product use in unapproved indication [Unknown]
  - Product quality issue [Unknown]
  - Dyspnoea [Recovered/Resolved]
  - Drug dose omission [Recovered/Resolved]

NARRATIVE: CASE EVENT DATE: 20171211
